FAERS Safety Report 4422696-0 (Version None)
Quarter: 2004Q3

REPORT INFORMATION
  Report Type: 
  Country: None (occurrence: None)
  Receive Date: 20040713
  Receipt Date: 20030721
  Transmission Date: 20050211
  Serious: No
  Sender: FDA-Public Use
  Company Number: PHEH2003US06282

PATIENT
  Age: 45 Year
  Sex: Female

DRUGS (5)
  1. ELIDEL [Suspect]
     Indication: VITILIGO
     Dosage: BID, TOPICAL
     Route: 061
  2. MULTIVITAMIN [Concomitant]
  3. PROGESTERONE [Concomitant]
  4. ESTRADIOL [Concomitant]
  5. ZOLOFT [Concomitant]

REACTIONS (1)
  - ERYTHEMA [None]
